FAERS Safety Report 11930189 (Version 1)
Quarter: 2016Q1

REPORT INFORMATION
  Report Type: Spontaneous
  Country: US (occurrence: None)
  Receive Date: 20160120
  Receipt Date: 20160120
  Transmission Date: 20160526
  Serious: Yes (Hospitalization)
  Sender: FDA-Public Use
  Company Number: None

PATIENT
  Age: 65 Year
  Sex: Male
  Weight: 77.7 kg

DRUGS (2)
  1. DOFETILIDE [Suspect]
     Active Substance: DOFETILIDE
     Indication: ATRIAL FLUTTER
     Route: 048
     Dates: start: 20150501, end: 20150502
  2. DOFETILIDE [Suspect]
     Active Substance: DOFETILIDE
     Indication: ATRIAL FIBRILLATION
     Route: 048
     Dates: start: 20150501, end: 20150502

REACTIONS (5)
  - Dyspnoea [None]
  - Confusional state [None]
  - Pulse absent [None]
  - Aggression [None]
  - Tachyarrhythmia [None]

NARRATIVE: CASE EVENT DATE: 20150502
